FAERS Safety Report 5642793-1 (Version None)
Quarter: 2008Q1

REPORT INFORMATION
  Report Type: 
  Country: None (occurrence: None)
  Receive Date: 20080227
  Receipt Date: 20080227
  Transmission Date: 20080703
  Serious: Yes (Other)
  Sender: FDA-Public Use
  Company Number: None

PATIENT
  Age: 43 Year
  Sex: Male
  Weight: 127.91 kg

DRUGS (2)
  1. VARENICLINE [Suspect]
     Indication: EX-SMOKER
     Dosage: 1 MG BID PO
     Route: 048
     Dates: start: 20080108, end: 20080203
  2. VARENICLINE [Suspect]
     Indication: VASCULAR OPERATION
     Dosage: 1 MG BID PO
     Route: 048
     Dates: start: 20080108, end: 20080203

REACTIONS (1)
  - DEPRESSION [None]
